FAERS Safety Report 5013084-7 (Version None)
Quarter: 2006Q2

REPORT INFORMATION
  Report Type: 
  Country: None (occurrence: None)
  Receive Date: 20060530
  Receipt Date: 20060220
  Transmission Date: 20061013
  Serious: Yes (Other)
  Sender: FDA-Public Use
  Company Number: US-GLAXOSMITHKLINE-A0594381A

PATIENT
  Age: 40 Year
  Sex: Female

DRUGS (4)
  1. WELLBUTRIN [Suspect]
     Indication: ANXIETY
     Dosage: 150MG PER DAY
     Route: 048
     Dates: start: 20060210, end: 20060218
  2. ATENOLOL [Concomitant]
     Dosage: 75MG PER DAY
  3. LEVOXYL [Concomitant]
     Dosage: .112MCG PER DAY
  4. DIOVAN [Concomitant]
     Dosage: 160MG PER DAY

REACTIONS (3)
  - LOCAL SWELLING [None]
  - NAUSEA [None]
  - RASH PRURITIC [None]
